FAERS Safety Report 5530192-2 (Version None)
Quarter: 2007Q3

REPORT INFORMATION
  Report Type: 
  Country: None (occurrence: None)
  Receive Date: 20070831
  Receipt Date: 20070622
  Transmission Date: 20080115
  Serious: Yes (Other)
  Sender: FDA-Public Use
  Company Number: 015219

PATIENT
  Age: 20 Year
  Sex: Female
  Weight: 52.2 kg

DRUGS (1)
  1. PLAN B [Suspect]
     Indication: CONTRACEPTION
     Dosage: 2 TABLET, SINGLE, ORAL
     Route: 048
     Dates: start: 20070614, end: 20070614

REACTIONS (4)
  - DIZZINESS [None]
  - FATIGUE [None]
  - MENSTRUATION IRREGULAR [None]
  - NAUSEA [None]
